FAERS Safety Report 8964543 (Version 2)
Quarter: 2012Q4

REPORT INFORMATION
  Report Type: 
  Country: US (occurrence: US)
  Receive Date: 20121213
  Receipt Date: 20121227
  Transmission Date: 20130627
  Serious: Yes (Other)
  Sender: FDA-Public Use
  Company Number: US-ROCHE-1167901

PATIENT

DRUGS (3)
  1. BEVACIZUMAB [Suspect]
     Indication: RETINAL VEIN OCCLUSION
     Route: 050
  2. BEVACIZUMAB [Suspect]
     Indication: MACULAR OEDEMA
  3. BEVACIZUMAB [Suspect]
     Indication: OFF LABEL USE

REACTIONS (1)
  - Ischaemia [Unknown]
